FAERS Safety Report 23171262 (Version 3)
Quarter: 2024Q1

REPORT INFORMATION
  Report Type: Spontaneous
  Country: CA (occurrence: CA)
  Receive Date: 20231110
  Receipt Date: 20240219
  Transmission Date: 20240410
  Serious: Yes (Hospitalization, Disabling)
  Sender: FDA-Public Use
  Company Number: CA-FreseniusKabi-FK202317903

PATIENT
  Age: 40 Year
  Sex: Female
  Weight: 84 kg

DRUGS (10)
  1. ETOPOSIDE [Suspect]
     Active Substance: ETOPOSIDE
     Indication: Ovarian germ cell teratoma
     Dosage: DOSAGE FORM: NOT SPECIFIED
  2. BLEOMYCIN SULFATE [Suspect]
     Active Substance: BLEOMYCIN SULFATE
     Indication: Ovarian germ cell teratoma
     Dosage: FORM OF ADMIN.- INJECTION
  3. CISPLATIN [Suspect]
     Active Substance: CISPLATIN
     Indication: Ovarian germ cell teratoma
     Dosage: FORM OF ADMIN.- SOLUTION INTRAVENOUS?ROUTE OF ADMIN.- INTRAVENOUS (NOT OTHERWISE SPECIFIED) ( INT )
  4. CITALOPRAM [Concomitant]
     Active Substance: CITALOPRAM HYDROBROMIDE
     Indication: Product used for unknown indication
     Dosage: FORM OF ADMIN.- TABLETS
  5. CLONAZEPAM [Concomitant]
     Active Substance: CLONAZEPAM
     Indication: Product used for unknown indication
     Dosage: FORM OF ADMIN.- TABLETS
  6. EMEND [Concomitant]
     Active Substance: APREPITANT
     Indication: Product used for unknown indication
     Dosage: FORM OF ADMIN.- CAPSULES
  7. METHYLPHENIDATE [Concomitant]
     Active Substance: METHYLPHENIDATE
     Indication: Product used for unknown indication
     Dosage: FORM OF ADMIN.- NOT SPECIFIED
  8. OLANZAPINE [Concomitant]
     Active Substance: OLANZAPINE
     Indication: Product used for unknown indication
     Dosage: FORM OF ADMIN.- NOT SPECIFIED
  9. OXAZEPAM [Concomitant]
     Active Substance: OXAZEPAM
     Indication: Product used for unknown indication
     Dosage: FORM OF ADMIN.- TABLET
  10. PROCHLORPERAZINE [Concomitant]
     Active Substance: PROCHLORPERAZINE
     Indication: Product used for unknown indication
     Dosage: FORM OF ADMIN.- NOT SPECIFIED

REACTIONS (5)
  - Aphasia [Not Recovered/Not Resolved]
  - Cerebrovascular accident [Unknown]
  - Febrile neutropenia [Recovered/Resolved]
  - Product use in unapproved indication [Unknown]
  - Middle cerebral artery stroke [Not Recovered/Not Resolved]
